FAERS Safety Report 4432462-8 (Version None)
Quarter: 2004Q3

REPORT INFORMATION
  Report Type: 
  Country: None (occurrence: None)
  Receive Date: 20040818
  Receipt Date: 20040806
  Transmission Date: 20050211
  Serious: Yes (Other)
  Sender: FDA-Public Use
  Company Number: 2004227251US

PATIENT
  Age: 13 Year
  Sex: Male
  Weight: 72.6 kg

DRUGS (1)
  1. GENOTROPIN [Suspect]
     Indication: PRADER-WILLI SYNDROME
     Dosage: 0.23MG/KG/WEEK

REACTIONS (8)
  - ABDOMINAL PAIN [None]
  - DIABETES MELLITUS [None]
  - DIABETIC KETOACIDOSIS [None]
  - DYSPNOEA [None]
  - HYPOGLYCAEMIA [None]
  - NAUSEA [None]
  - VOMITING [None]
  - WEIGHT INCREASED [None]
